FAERS Safety Report 18263571 (Version 1)
Quarter: 2020Q3

REPORT INFORMATION
  Report Type: Spontaneous
  Country: DE (occurrence: DE)
  Receive Date: 20200914
  Receipt Date: 20200914
  Transmission Date: 20201103
  Serious: Yes (Hospitalization, Other)
  Sender: FDA-Public Use
  Company Number: DE-IBIGEN-2020.09278

PATIENT
  Age: 18 Year
  Sex: Male

DRUGS (2)
  1. PIPERACILLIN AND TAZOBACTAM [Suspect]
     Active Substance: PIPERACILLIN SODIUM\TAZOBACTAM SODIUM
     Indication: OSTEOSARCOMA
     Dosage: HIGH DOSE
  2. MTX [Suspect]
     Active Substance: METHOTREXATE SODIUM
     Indication: OSTEOSARCOMA
     Dosage: HIGH DOSE

REACTIONS (3)
  - Neurotoxicity [Recovered/Resolved]
  - Renal failure [Recovered/Resolved]
  - Drug interaction [Recovered/Resolved]
